FAERS Safety Report 20281747 (Version 3)
Quarter: 2022Q4

REPORT INFORMATION
  Report Type: Report from Study
  Country: JP (occurrence: JP)
  Receive Date: 20220103
  Receipt Date: 20221215
  Transmission Date: 20230112
  Serious: Yes (Death, Hospitalization, Other)
  Sender: FDA-Public Use
  Company Number: JP-AMGEN-JPNNI2021205332

PATIENT
  Age: 69 Year
  Sex: Female
  Weight: 68 kg

DRUGS (7)
  1. EVOLOCUMAB [Suspect]
     Active Substance: EVOLOCUMAB
     Indication: Type IIa hyperlipidaemia
     Dosage: 420 MILLIGRAM, Q4WK
     Route: 058
     Dates: start: 20200330
  2. EVOLOCUMAB [Suspect]
     Active Substance: EVOLOCUMAB
     Dosage: 420 MILLIGRAM, Q8WK
     Route: 058
     Dates: start: 20201022, end: 20210302
  3. CRESTOR [Concomitant]
     Active Substance: ROSUVASTATIN CALCIUM
     Indication: Type IIa hyperlipidaemia
     Dosage: 10 MILLIGRAM, QD, 2 TABLET
     Dates: end: 20210727
  4. ASPIRIN [Concomitant]
     Active Substance: ASPIRIN
     Indication: Prophylaxis
     Dosage: 100 MILLIGRAM, QD
     Route: 048
     Dates: end: 20220113
  5. PRASUGREL HYDROCHLORIDE [Concomitant]
     Active Substance: PRASUGREL HYDROCHLORIDE
     Indication: Prophylaxis
     Dosage: 3.75 MILLIGRAM, QD
     Route: 048
     Dates: end: 20201021
  6. NIFEDIPINE [Concomitant]
     Active Substance: NIFEDIPINE
     Dosage: 80 MILLIGRAM, QD
     Route: 048
     Dates: end: 20220113
  7. ALDOMET [Concomitant]
     Active Substance: METHYLDOPA
     Dosage: 500 MILLIGRAM, QD
     Route: 048
     Dates: end: 20220113

REACTIONS (2)
  - Angina pectoris [Recovering/Resolving]
  - Cardiac failure [Fatal]

NARRATIVE: CASE EVENT DATE: 20200811
